APPROVED DRUG PRODUCT: AMLODIPINE BENZOATE
Active Ingredient: AMLODIPINE BENZOATE
Strength: EQ 1MG BASE/ML
Dosage Form/Route: SUSPENSION;ORAL
Application: A215035 | Product #001
Applicant: AMNEAL PHARMACEUTICALS LLC
Approved: Jun 13, 2023 | RLD: No | RS: No | Type: DISCN